FAERS Safety Report 16687974 (Version 2)
Quarter: 2019Q4

REPORT INFORMATION
  Report Type: Spontaneous
  Country: FR (occurrence: FR)
  Receive Date: 20190809
  Receipt Date: 20191219
  Transmission Date: 20200122
  Serious: Yes (Death, Other)
  Sender: FDA-Public Use
  Company Number: FR-SA-2019SA213234

PATIENT
  Age: 7 Year
  Sex: Female

DRUGS (17)
  1. BACLOFEN. [Suspect]
     Active Substance: BACLOFEN
     Indication: CEREBRAL PALSY
     Dosage: UNK UNK, UNK
     Route: 065
  2. GABAPENTIN. [Suspect]
     Active Substance: GABAPENTIN
     Indication: CEREBRAL PALSY
     Dosage: UNK UNK, UNK
     Route: 065
  3. CLONIDINE. [Suspect]
     Active Substance: CLONIDINE
     Indication: CEREBRAL PALSY
     Dosage: 0.15 MG, QD
     Route: 048
  4. IBUPROFEN. [Suspect]
     Active Substance: IBUPROFEN
     Indication: CEREBRAL PALSY
     Dosage: UNK UNK, UNK
     Route: 065
  5. CETIRIZINE HYDROCHLORIDE. [Suspect]
     Active Substance: CETIRIZINE HYDROCHLORIDE
     Indication: CEREBRAL PALSY
     Dosage: UNK UNK, UNK
     Route: 065
  6. RANITIDINE. [Suspect]
     Active Substance: RANITIDINE
     Indication: CEREBRAL PALSY
     Dosage: UNK UNK, UNK
     Route: 065
  7. IPRATROPIUM BROMIDE. [Suspect]
     Active Substance: IPRATROPIUM BROMIDE
     Indication: CEREBRAL PALSY
     Dosage: UNK UNK, UNK
     Route: 065
  8. GENTAMICIN SULFATE. [Suspect]
     Active Substance: GENTAMICIN SULFATE
     Indication: CEREBRAL PALSY
     Dosage: UNK UNK, UNK
     Route: 065
  9. TRANXENE [Suspect]
     Active Substance: CLORAZEPATE DIPOTASSIUM
     Indication: CEREBRAL PALSY
     Dosage: UNK UNK, UNK
     Route: 065
  10. LEVETIRACETAM. [Suspect]
     Active Substance: LEVETIRACETAM
     Indication: CEREBRAL PALSY
     Dosage: UNK UNK, UNK
     Route: 065
  11. DIPOTASSIUM CLORAZEPATE [Suspect]
     Active Substance: CLORAZEPATE DIPOTASSIUM
     Indication: CEREBRAL PALSY
     Dosage: UNK UNK, UNK
     Route: 065
  12. BUDESONIDE. [Suspect]
     Active Substance: BUDESONIDE
     Indication: CEREBRAL PALSY
     Dosage: UNK UNK, UNK
     Route: 065
  13. VALPROIC ACID. [Suspect]
     Active Substance: VALPROIC ACID
     Indication: CEREBRAL PALSY
     Dosage: UNK UNK, UNK
     Route: 065
  14. METOCLOPRAMIDE HYDROCHLORIDE. [Suspect]
     Active Substance: METOCLOPRAMIDE HYDROCHLORIDE
     Indication: CEREBRAL PALSY
     Dosage: UNK UNK, UNK
     Route: 065
  15. LEVOSALBUTAMOL [Suspect]
     Active Substance: LEVALBUTEROL
     Indication: CEREBRAL PALSY
     Dosage: UNK UNK, UNK
     Route: 065
  16. LACTULOSE. [Suspect]
     Active Substance: LACTULOSE
     Indication: CEREBRAL PALSY
     Dosage: UNK UNK, UNK
     Route: 065
  17. BOTOX [Suspect]
     Active Substance: ONABOTULINUMTOXINA
     Indication: CEREBRAL PALSY
     Dosage: UNK UNK, UNK
     Route: 030

REACTIONS (5)
  - Off label use [Unknown]
  - Seizure [Fatal]
  - Muscular weakness [Fatal]
  - Pneumonia [Fatal]
  - Death [Fatal]
